FAERS Safety Report 16088936 (Version 3)
Quarter: 2019Q3

REPORT INFORMATION
  Report Type: Spontaneous
  Country: US (occurrence: US)
  Receive Date: 20190319
  Receipt Date: 20190828
  Transmission Date: 20191004
  Serious: No
  Sender: FDA-Public Use
  Company Number: US-MYLANLABS-2019M1018470

PATIENT
  Sex: Female
  Weight: 50 kg

DRUGS (2)
  1. CLORAZEPATE DIPOTASSIUM TABLETS, USP [Suspect]
     Active Substance: CLORAZEPATE DIPOTASSIUM
     Indication: BACK PAIN
  2. CLORAZEPATE DIPOTASSIUM TABLETS, USP [Suspect]
     Active Substance: CLORAZEPATE DIPOTASSIUM
     Indication: SLEEP DISORDER
     Dosage: 15 MILLIGRAM
     Route: 048

REACTIONS (8)
  - Oropharyngeal discomfort [Unknown]
  - Drug ineffective for unapproved indication [Unknown]
  - Lip pain [Not Recovered/Not Resolved]
  - Sinusitis [Unknown]
  - Tremor [Unknown]
  - Eye irritation [Not Recovered/Not Resolved]
  - Urticaria [Not Recovered/Not Resolved]
  - Pruritus [Not Recovered/Not Resolved]
